FAERS Safety Report 6718038-8 (Version None)
Quarter: 2010Q2

REPORT INFORMATION
  Report Type: 
  Country: None (occurrence: None)
  Receive Date: 20100510
  Receipt Date: 20100429
  Transmission Date: 20101027
  Serious: Yes (Other)
  Sender: FDA-Public Use
  Company Number: PHHY2010BR28293

PATIENT
  Sex: Female

DRUGS (2)
  1. ACLASTA [Suspect]
     Indication: OSTEOPOROSIS
     Dosage: 5MG/100ML
     Route: 042
  2. PAMELOR [Suspect]
     Indication: DEPRESSION

REACTIONS (3)
  - FALL [None]
  - SPINAL COLUMN INJURY [None]
  - VISION BLURRED [None]
